FAERS Safety Report 17415919 (Version 1)
Quarter: 2020Q1

REPORT INFORMATION
  Report Type: Spontaneous
  Country: US (occurrence: US)
  Receive Date: 20200130
  Receipt Date: 20200130
  Transmission Date: 20200409
  Serious: No
  Sender: FDA-Public Use
  Company Number: None

PATIENT
  Age: 46 Year
  Sex: Female

DRUGS (2)
  1. ENBREL [Suspect]
     Active Substance: ETANERCEPT
     Indication: ANKYLOSING SPONDYLITIS
     Dosage: INJECT 50MG SUBCUTANEOUSLY ONCE WEEKLY USING THE AUTO TOUCH DEVICE AS DIRECTED
     Route: 058
     Dates: start: 201909
  2. ENBREL [Suspect]
     Active Substance: ETANERCEPT
     Indication: SPONDYLOARTHROPATHY
     Dosage: INJECT 50MG SUBCUTANEOUSLY ONCE WEEKLY USING THE AUTO TOUCH DEVICE AS DIRECTED
     Route: 058
     Dates: start: 201909

REACTIONS (1)
  - Lithotripsy [None]
